FAERS Safety Report 12106493 (Version 1)
Quarter: 2016Q1

REPORT INFORMATION
  Report Type: Report from Study
  Country: US (occurrence: US)
  Receive Date: 20160223
  Receipt Date: 20160223
  Transmission Date: 20160526
  Serious: Yes (Hospitalization)
  Sender: FDA-Public Use
  Company Number: US-MYLANLABS-2016M1006535

PATIENT

DRUGS (4)
  1. DILAUDID [Concomitant]
     Active Substance: HYDROMORPHONE HYDROCHLORIDE
     Dosage: UNK
  2. FOLIC ACID. [Concomitant]
     Active Substance: FOLIC ACID
     Dosage: UNK
  3. FENTANYL. [Suspect]
     Active Substance: FENTANYL
     Indication: PAIN MANAGEMENT
     Dosage: 200 MG, Q72H
     Route: 061
     Dates: start: 20151202
  4. HYDROXYUREA. [Concomitant]
     Active Substance: HYDROXYUREA
     Dosage: UNK

REACTIONS (1)
  - Drug ineffective [Not Recovered/Not Resolved]
